FAERS Safety Report 18756748 (Version 1)
Quarter: 2021Q1

REPORT INFORMATION
  Report Type: Spontaneous
  Country: US (occurrence: US)
  Receive Date: 20210119
  Receipt Date: 20210119
  Transmission Date: 20210419
  Serious: Yes (Hospitalization)
  Sender: FDA-Public Use
  Company Number: US-SAOL THERAPEUTICS-2021SAO00006

PATIENT
  Age: 44 Year
  Sex: Male

DRUGS (1)
  1. BACLOFEN. [Suspect]
     Active Substance: BACLOFEN
     Indication: PAIN IN EXTREMITY
     Dosage: 10 MG, 2X/DAY
     Route: 065

REACTIONS (2)
  - Neurotoxicity [Recovered/Resolved]
  - Encephalopathy [Recovered/Resolved]
